FAERS Safety Report 9499840 (Version 1)
Quarter: 2013Q3

REPORT INFORMATION
  Report Type: Spontaneous
  Country: EG (occurrence: EG)
  Receive Date: 20130905
  Receipt Date: 20130905
  Transmission Date: 20140515
  Serious: Yes (Death, Hospitalization)
  Sender: FDA-Public Use
  Company Number: EG-ROCHE-1270371

PATIENT
  Sex: Male

DRUGS (2)
  1. MABTHERA [Suspect]
     Indication: CHRONIC LYMPHOCYTIC LEUKAEMIA
     Route: 065
     Dates: start: 2010
  2. MABTHERA [Suspect]
     Route: 041
     Dates: start: 201204, end: 201206

REACTIONS (2)
  - General physical health deterioration [Fatal]
  - Tachycardia [Recovered/Resolved]
